FAERS Safety Report 17017480 (Version 1)
Quarter: 2019Q4

REPORT INFORMATION
  Report Type: Spontaneous
  Country: US (occurrence: US)
  Receive Date: 20191004
  Receipt Date: 20191004
  Transmission Date: 20200122
  Serious: Yes (Hospitalization)
  Sender: FDA-Public Use
  Company Number: None

PATIENT
  Age: 75 Year
  Sex: Male
  Weight: 111.5 kg

DRUGS (3)
  1. NEULASTA [Suspect]
     Active Substance: PEGFILGRASTIM
     Dates: end: 20190508
  2. GEMCITABINE HYDROCHLORIDE. [Suspect]
     Active Substance: GEMCITABINE HYDROCHLORIDE
     Dates: end: 20190507
  3. CISPLATIN. [Suspect]
     Active Substance: CISPLATIN
     Dates: start: 20190508

REACTIONS (10)
  - Musculoskeletal chest pain [None]
  - Back pain [None]
  - Dizziness [None]
  - Haematuria [None]
  - Anaemia [None]
  - Decreased appetite [None]
  - Hyperkalaemia [None]
  - Acute kidney injury [None]
  - Systemic candida [None]
  - Hydronephrosis [None]

NARRATIVE: CASE EVENT DATE: 20190922
